FAERS Safety Report 9029602 (Version 2)
Quarter: 2013Q1

REPORT INFORMATION
  Report Type: Spontaneous
  Country: US (occurrence: US)
  Receive Date: 20130125
  Receipt Date: 20130204
  Transmission Date: 20140127
  Serious: Yes (Hospitalization)
  Sender: FDA-Public Use
  Company Number: US-BAYER-2013-009555

PATIENT
  Age: 47 Year
  Sex: Female

DRUGS (13)
  1. YASMIN [Suspect]
  2. YAZ [Suspect]
  3. NEXIUM [Concomitant]
     Dosage: 40 MG, DAILY
     Route: 048
  4. LYRICA [Concomitant]
     Dosage: 100 MG, BID
  5. TOPIRAMATE [Concomitant]
     Dosage: 100 MG, UNK
  6. ALBUTEROL [Concomitant]
  7. SEROQUEL [Concomitant]
  8. NASACORT [Concomitant]
     Route: 045
  9. PROAIR HFA [Concomitant]
     Dosage: 90 ?G, UNK
     Route: 045
  10. ADVAIR [Concomitant]
     Dosage: 250-50 DISCUS
  11. HYDROCODONE CPAP [Concomitant]
     Dosage: 7.5-500
  12. PREDNISONE [Concomitant]
  13. TOPAMAX [Concomitant]
     Indication: MIGRAINE

REACTIONS (2)
  - Pulmonary embolism [None]
  - Injury [None]
